FAERS Safety Report 7690894-9 (Version None)
Quarter: 2011Q3

REPORT INFORMATION
  Report Type: 
  Country: None (occurrence: None)
  Receive Date: 20110818
  Receipt Date: 20110818
  Transmission Date: 20111222
  Serious: Yes (Disabling, Other)
  Sender: FDA-Public Use
  Company Number: None

PATIENT
  Age: 25 Year
  Sex: Female
  Weight: 81.646 kg

DRUGS (1)
  1. MIRENA [Suspect]
     Indication: CONTRACEPTION
     Dosage: I DEVICE
     Route: 015
     Dates: start: 20100301, end: 20101110

REACTIONS (8)
  - HEADACHE [None]
  - INFERTILITY [None]
  - ANXIETY [None]
  - IRRITABILITY [None]
  - UNEVALUABLE EVENT [None]
  - DEPRESSION [None]
  - WEIGHT INCREASED [None]
  - DEVICE DISLOCATION [None]
